FAERS Safety Report 6887865-9 (Version None)
Quarter: 2010Q3

REPORT INFORMATION
  Report Type: 
  Country: None (occurrence: None)
  Receive Date: 20100730
  Receipt Date: 20100719
  Transmission Date: 20110219
  Serious: Yes (Other)
  Sender: FDA-Public Use
  Company Number: US-JNJCH-2010013294

PATIENT
  Sex: Male
  Weight: 86.2 kg

DRUGS (6)
  1. LISTERINE TOTAL CARE ANTICAVITY MOUTHWASH CINNAMINT [Suspect]
     Indication: DENTAL DISORDER PROPHYLAXIS
     Dosage: TEXT:1-2 TSP TWICE DAILY
     Route: 048
  2. CENTRUM SILVER [Concomitant]
     Indication: VITAMIN SUPPLEMENTATION
     Dosage: TEXT:UNSPECIFIED ONCE DAILY
     Route: 065
  3. GLUCOSAMINE W/CHONDROITIN SULFATES [Concomitant]
     Indication: ARTHRITIS
     Dosage: TEXT:UNSPECIFIED TWICE DAILY
     Route: 065
  4. LOVAZA [Concomitant]
     Indication: VITAMIN SUPPLEMENTATION
     Route: 065
  5. VITAMIN D [Concomitant]
     Indication: VITAMIN SUPPLEMENTATION
     Route: 065
  6. ASPIRIN [Concomitant]
     Indication: PROPHYLAXIS
     Dosage: TEXT:UNSPECIFIED ONCE DAILY
     Route: 065

REACTIONS (5)
  - APPLICATION SITE BURN [None]
  - HYPERSENSITIVITY [None]
  - MEDICATION RESIDUE [None]
  - ORAL MUCOSAL EXFOLIATION [None]
  - TONGUE EXFOLIATION [None]
